FAERS Safety Report 6038696-3 (Version None)
Quarter: 2009Q1

REPORT INFORMATION
  Report Type: 
  Country: None (occurrence: None)
  Receive Date: 20090115
  Receipt Date: 20080916
  Transmission Date: 20090719
  Serious: No
  Sender: FDA-Public Use
  Company Number: US-BAYER-200813796BCC

PATIENT
  Age: 69 Year
  Sex: Female
  Weight: 64 kg

DRUGS (4)
  1. ALEVE (CAPLET) [Suspect]
     Indication: NECK PAIN
     Dosage: UNIT DOSE: 220 MG
  2. ALEVE (CAPLET) [Suspect]
     Dosage: UNIT DOSE: 220 MG
     Dates: start: 20050101
  3. ALEVE (CAPLET) [Suspect]
     Dosage: UNIT DOSE: 220 MG
  4. SIMVASTATIN [Concomitant]

REACTIONS (1)
  - INSOMNIA [None]
